FAERS Safety Report 10235317 (Version 1)
Quarter: 2014Q1

REPORT INFORMATION
  Report Type: Spontaneous
  Country: US (occurrence: None)
  Receive Date: 20140306
  Receipt Date: 20140306
  Transmission Date: 20141002
  Serious: Yes (Hospitalization, Other)
  Sender: FDA-Public Use
  Company Number: 163-21880-13092117

PATIENT
  Age: 67 Year
  Sex: Female

DRUGS (16)
  1. REVLIMID (LENALIDOMIDE) (CAPSULES) [Suspect]
     Indication: PLASMA CELL MYELOMA
     Dosage: 21 IN 21 D
     Route: 048
     Dates: start: 20130423
  2. ASPIRIN (ACETYLSALICYLIC ACID) [Concomitant]
  3. ATENOLOL (ATENOLOL) [Concomitant]
  4. B-12 (CYANOCOBALAMIN) [Concomitant]
  5. CYANOCOBALAMIN (CYANOCOBALAMIN) [Concomitant]
  6. DULERA (DULERA) [Concomitant]
  7. GLIPIZIDE (GLIPIZIDE) [Concomitant]
  8. KLOR-CON (POTASSIUM CHLORIDE) [Concomitant]
  9. LOVASTATIN (LOVASTATIN) [Concomitant]
  10. BUMETAINDE (BUMETANIDE) [Concomitant]
  11. SIMVASTATIN (SIMVASTATIN) [Concomitant]
  12. MULTIVITAMINS (MULTIVITAMINS) [Concomitant]
  13. VITAMIN D3 [Concomitant]
  14. TRIAMTERENE/HCTZ (DYAZIDE) [Concomitant]
  15. VELCADE (BORTEZOMIB) [Concomitant]
  16. DEXAMETHASONE (DEXAMETHASONE) [Concomitant]

REACTIONS (3)
  - Syncope [None]
  - Orthostatic hypotension [None]
  - Dehydration [None]
